FAERS Safety Report 7822672-1 (Version None)
Quarter: 2011Q4

REPORT INFORMATION
  Report Type: 
  Country: None (occurrence: None)
  Receive Date: 20111018
  Receipt Date: 20111004
  Transmission Date: 20120403
  Serious: Yes (Hospitalization, Other)
  Sender: FDA-Public Use
  Company Number: FR-ROCHE-GNE323617

PATIENT
  Sex: Female

DRUGS (1)
  1. XOLAIR [Suspect]
     Indication: ASTHMA
     Dosage: 300 MG, 1/MONTH
     Dates: start: 20070101

REACTIONS (12)
  - MUSCULOSKELETAL CHEST PAIN [None]
  - PAIN IN EXTREMITY [None]
  - FATIGUE [None]
  - ARTHRALGIA [None]
  - TENDONITIS [None]
  - ANAEMIA [None]
  - HEPATIC NEOPLASM [None]
  - DECREASED APPETITE [None]
  - CYANOSIS [None]
  - ABDOMINAL NEOPLASM [None]
  - MUSCULOSKELETAL PAIN [None]
  - WEIGHT DECREASED [None]
